FAERS Safety Report 15100873 (Version 1)
Quarter: 2018Q2

REPORT INFORMATION
  Report Type: Spontaneous
  Country: US (occurrence: US)
  Receive Date: 20180611
  Receipt Date: 20180611
  Transmission Date: 20180711
  Serious: No
  Sender: FDA-Public Use
  Company Number: None

PATIENT
  Age: 49 Year
  Sex: Male

DRUGS (1)
  1. COSENTYX [Suspect]
     Active Substance: SECUKINUMAB
     Dates: start: 20170928, end: 20180611

REACTIONS (4)
  - Haematochezia [None]
  - Systemic lupus erythematosus [None]
  - Alopecia [None]
  - Sinus disorder [None]

NARRATIVE: CASE EVENT DATE: 20180611
